FAERS Safety Report 12660533 (Version 2)
Quarter: 2016Q3

REPORT INFORMATION
  Report Type: Spontaneous
  Country: US (occurrence: US)
  Receive Date: 20160817
  Receipt Date: 20160901
  Transmission Date: 20161109
  Serious: No
  Sender: FDA-Public Use
  Company Number: US-RELYPSA-RLY2016000988

PATIENT
  Sex: Male

DRUGS (13)
  1. VELTASSA [Suspect]
     Active Substance: PATIROMER
     Indication: HYPERKALAEMIA
     Dosage: 8.4 G, QD
     Route: 048
  2. COREG CR [Concomitant]
     Active Substance: CARVEDILOL PHOSPHATE
  3. CRESTOR [Concomitant]
     Active Substance: ROSUVASTATIN CALCIUM
  4. DERMADEX                           /00016007/ [Concomitant]
  5. PLAVIX [Concomitant]
     Active Substance: CLOPIDOGREL BISULFATE
  6. ASPIRIN 81 [Concomitant]
     Active Substance: ASPIRIN
  7. ENTRESTO [Concomitant]
     Active Substance: SACUBITRIL\VALSARTAN
  8. ALDACTONE [Concomitant]
     Active Substance: SPIRONOLACTONE
  9. NITRO-DUR [Concomitant]
     Active Substance: NITROGLYCERIN
  10. STOOL SOFTENER [Concomitant]
     Active Substance: DOCUSATE CALCIUM
  11. DEPAKOTE [Concomitant]
     Active Substance: DIVALPROEX SODIUM
  12. IVABRADINE [Concomitant]
     Active Substance: IVABRADINE
  13. LAXATIVE [Concomitant]
     Active Substance: UNSPECIFIED INGREDIENT

REACTIONS (1)
  - Blood sodium decreased [Unknown]
